FAERS Safety Report 8194273-X (Version None)
Quarter: 2012Q1

REPORT INFORMATION
  Report Type: 
  Country: None (occurrence: None)
  Receive Date: 20120308
  Receipt Date: 20120305
  Transmission Date: 20120608
  Serious: Yes (Hospitalization, Other)
  Sender: FDA-Public Use
  Company Number: US-AMGEN-USASP2011026096

PATIENT
  Age: 80 Year
  Sex: Female
  Weight: 76.644 kg

DRUGS (7)
  1. XGEVA [Suspect]
     Indication: METASTASES TO BONE
     Dosage: 120 MG, Q4WK
     Route: 058
     Dates: start: 20110413, end: 20110810
  2. PRINIVIL [Concomitant]
     Dosage: UNK
  3. XGEVA [Suspect]
     Indication: BREAST CANCER METASTATIC
  4. ASPIRIN [Concomitant]
     Dosage: UNK
  5. LIPITOR [Concomitant]
     Dosage: UNK
  6. AROMASIN [Concomitant]
     Dosage: UNK
     Dates: start: 20110413
  7. VICODIN [Concomitant]
     Dosage: UNK

REACTIONS (3)
  - NECK PAIN [None]
  - MUSCULOSKELETAL PAIN [None]
  - DENTAL CARE [None]
